FAERS Safety Report 15290595 (Version 4)
Quarter: 2018Q3

REPORT INFORMATION
  Report Type: Report from Study
  Country: CN (occurrence: CN)
  Receive Date: 20180817
  Receipt Date: 20180831
  Transmission Date: 20181010
  Serious: Yes (Hospitalization, Other)
  Sender: FDA-Public Use
  Company Number: PHHY2015CN078873

PATIENT
  Age: 58 Year
  Sex: Female
  Weight: 47 kg

DRUGS (337)
  1. SIMULECT [Suspect]
     Active Substance: BASILIXIMAB
     Indication: PROPHYLAXIS AGAINST TRANSPLANT REJECTION
     Dosage: 20 MG, QD
     Route: 042
     Dates: start: 20150616
  2. TACROLIMUS. [Concomitant]
     Active Substance: TACROLIMUS
     Indication: PROPHYLAXIS AGAINST TRANSPLANT REJECTION
     Dosage: 3 MG, QD
     Route: 065
     Dates: start: 20150612, end: 20150617
  3. TACROLIMUS. [Concomitant]
     Active Substance: TACROLIMUS
     Dosage: 1000 MG, QD
     Route: 065
     Dates: start: 20150714, end: 20150717
  4. VANCOMYCIN HYDROCHLORIDE. [Concomitant]
     Active Substance: VANCOMYCIN HYDROCHLORIDE
     Dosage: 500 MG, Q12H
     Route: 042
     Dates: start: 20150626, end: 20150629
  5. CEFOPERAZONE SODIUM AND TAZOBACTAM SODIUM [Concomitant]
     Active Substance: CEFOPERAZONE\TAZOBACTAM SODIUM
     Dosage: 2500 MG, BID
     Route: 042
     Dates: start: 20150908, end: 20150921
  6. CEFOPERAZONE SODIUM AND TAZOBACTAM SODIUM [Concomitant]
     Active Substance: CEFOPERAZONE\TAZOBACTAM SODIUM
     Dosage: 500 MG, QD
     Route: 042
     Dates: start: 20150612, end: 20150612
  7. CEFOPERAZONE SODIUM AND TAZOBACTAM SODIUM [Concomitant]
     Active Substance: CEFOPERAZONE\TAZOBACTAM SODIUM
     Dosage: 2500 MG, BID
     Route: 042
     Dates: start: 20151118, end: 20151118
  8. POTASSIUM CHLORIDE. [Concomitant]
     Active Substance: POTASSIUM CHLORIDE
     Dosage: 15 ML, QD
     Route: 042
     Dates: start: 20150724, end: 20150729
  9. SODIUM CHLORIDE. [Concomitant]
     Active Substance: SODIUM CHLORIDE
     Indication: MINERAL SUPPLEMENTATION
     Dosage: 1000 MG, BID
     Route: 048
     Dates: start: 20150720, end: 20150722
  10. CEFOSELIS SULFATE [Concomitant]
     Active Substance: CEFOSELIS SULFATE
     Indication: INFECTION
     Dosage: 1000 MG, Q12H
     Route: 042
     Dates: start: 20150708, end: 20150713
  11. ERYTHROCYTES [Concomitant]
     Active Substance: HUMAN RED BLOOD CELL
     Dosage: 2 U, QD
     Route: 042
     Dates: start: 20150701, end: 20150701
  12. ESMOLOL HYDROCHLORIDE. [Concomitant]
     Active Substance: ESMOLOL HYDROCHLORIDE
     Indication: BLOOD PRESSURE INCREASED
     Dosage: 50 MG, QD
     Route: 042
     Dates: start: 20150627, end: 20150627
  13. ESTAZOLAM. [Concomitant]
     Active Substance: ESTAZOLAM
     Indication: SLEEP DISORDER
     Dosage: 1 MG, QD
     Route: 048
     Dates: start: 20150616, end: 20150626
  14. FUDOSTEINE [Concomitant]
     Active Substance: FUDOSTEINE
     Indication: PRODUCTIVE COUGH
     Dosage: 400 MG, TID
     Route: 048
     Dates: start: 20150613, end: 20150626
  15. IMIPENEM [Concomitant]
     Active Substance: IMIPENEM
     Indication: INFECTION
     Dosage: 500 MG, Q6H
     Route: 042
     Dates: start: 20150622, end: 20150625
  16. INSULIN [Concomitant]
     Active Substance: INSULIN NOS
     Dosage: 4 IU, QD
     Route: 058
     Dates: start: 20150712, end: 20150712
  17. INSULIN [Concomitant]
     Active Substance: INSULIN NOS
     Dosage: 8 IU, QD
     Route: 058
     Dates: start: 20150812, end: 20150812
  18. INVERT SUGAR [Concomitant]
     Active Substance: INVERT SUGAR
     Indication: ELECTROLYTE SUBSTITUTION THERAPY
     Dosage: 500 ML, BID
     Route: 042
     Dates: start: 20150614, end: 20150619
  19. LANSOPRAZOLE. [Concomitant]
     Active Substance: LANSOPRAZOLE
     Dosage: 30 MG, BID
     Route: 042
     Dates: start: 20150713
  20. METOPROLOL TARTRATE. [Concomitant]
     Active Substance: METOPROLOL TARTRATE
     Indication: BLOOD PRESSURE INCREASED
     Dosage: 25 MG, Q12H
     Route: 048
     Dates: start: 20150613, end: 20150613
  21. MOSAPRIDE CITRATE [Concomitant]
     Active Substance: MOSAPRIDE CITRATE
     Dosage: 5 MG, TID
     Route: 048
     Dates: start: 20150723, end: 20150826
  22. MOSAPRIDE CITRATE [Concomitant]
     Active Substance: MOSAPRIDE CITRATE
     Dosage: 5 MG, TID
     Route: 048
     Dates: start: 20151111
  23. NIFEDIPINE. [Concomitant]
     Active Substance: NIFEDIPINE
     Indication: BLOOD PRESSURE INCREASED
     Dosage: 10 MG, QD
     Route: 060
     Dates: start: 20150612, end: 20150612
  24. NIFEDIPINE. [Concomitant]
     Active Substance: NIFEDIPINE
     Dosage: 20 MG, QD
     Route: 048
     Dates: start: 20150616, end: 20150616
  25. NIFEDIPINE. [Concomitant]
     Active Substance: NIFEDIPINE
     Dosage: 30 MG, QD
     Route: 048
     Dates: start: 20150704, end: 20150705
  26. PETHIDINE HYDROCHLORIDE [Concomitant]
     Active Substance: MEPERIDINE HYDROCHLORIDE
     Dosage: 75 MG, QD (75 MG, QD)
     Route: 030
     Dates: start: 20150704, end: 20150704
  27. PETHIDINE HYDROCHLORIDE [Concomitant]
     Active Substance: MEPERIDINE HYDROCHLORIDE
     Dosage: 25 MG, UNK
     Route: 030
     Dates: start: 20150704, end: 20150704
  28. POTASSIUM CHLORIDE. [Concomitant]
     Active Substance: POTASSIUM CHLORIDE
     Dosage: 1000 MG, BID
     Route: 048
     Dates: start: 20150619, end: 20150624
  29. POTASSIUM CHLORIDE. [Concomitant]
     Active Substance: POTASSIUM CHLORIDE
     Dosage: 20 ML, QD
     Route: 048
     Dates: start: 20150727, end: 20150727
  30. RECOMBINANT HUMAN ERYTHROPOIETIN [Concomitant]
     Active Substance: ERYTHROPOIETIN
     Indication: THROMBOCYTOPENIA
     Dosage: 15000 IU, QD
     Route: 042
     Dates: start: 20150923, end: 20150929
  31. SODIUM BICARBONATE. [Concomitant]
     Active Substance: SODIUM BICARBONATE
     Indication: DENTAL DISORDER PROPHYLAXIS
     Dosage: 10 ML, TID (GARGLING)
     Route: 065
     Dates: start: 20150906, end: 20150923
  32. SODIUM GLYCEROPHOSPHATE [Concomitant]
     Active Substance: SODIUM GLYCEROPHOSPHATE
     Dosage: 2160 MG, QD
     Route: 042
     Dates: start: 20150626, end: 20150713
  33. TERBUTALINE SULFATE. [Concomitant]
     Active Substance: TERBUTALINE SULFATE
     Indication: TRACHEAL DILATATION
     Dosage: 5 MG, BID (SPRAYING)
     Route: 065
     Dates: start: 20150713
  34. MYCOPHENOLATE SODIUM [Concomitant]
     Active Substance: MYCOPHENOLATE SODIUM
     Dosage: 1080 MG, QD
     Route: 065
     Dates: start: 20150617, end: 20150621
  35. MYCOPHENOLATE SODIUM [Concomitant]
     Active Substance: MYCOPHENOLATE SODIUM
     Dosage: 720 MG, QD
     Route: 065
     Dates: start: 20150622, end: 20150622
  36. ENEMA (SODIUM PHOSPHATE, DIBASIC\SODIUM PHOSPHATE, MONOBASIC) [Concomitant]
     Active Substance: SODIUM PHOSPHATE, DIBASIC\SODIUM PHOSPHATE, MONOBASIC
     Indication: CONSTIPATION
     Dosage: 40 ML, QD (ANALLY)
     Route: 065
     Dates: start: 20150815, end: 20150815
  37. ENEMA (SODIUM PHOSPHATE, DIBASIC\SODIUM PHOSPHATE, MONOBASIC) [Concomitant]
     Active Substance: SODIUM PHOSPHATE, DIBASIC\SODIUM PHOSPHATE, MONOBASIC
     Dosage: 40 ML, QD (ANALLY)
     Route: 065
     Dates: start: 20151020, end: 20151020
  38. ENEMA (SODIUM PHOSPHATE, DIBASIC\SODIUM PHOSPHATE, MONOBASIC) [Concomitant]
     Active Substance: SODIUM PHOSPHATE, DIBASIC\SODIUM PHOSPHATE, MONOBASIC
     Dosage: 40 ML, QD (ANALLY)
     Route: 065
     Dates: start: 20151115, end: 20151115
  39. MOSAPRIDE CITRATE [Concomitant]
     Active Substance: MOSAPRIDE CITRATE
     Indication: GASTRIC DISORDER
     Dosage: 5 MG, TID
     Route: 048
     Dates: start: 20150629, end: 20150703
  40. POSACONAZOLE [Concomitant]
     Active Substance: POSACONAZOLE
     Dosage: 5 ML, TID
     Route: 048
     Dates: start: 20151001, end: 20151003
  41. SULFAMETHOXAZOLE [Concomitant]
     Active Substance: SULFAMETHOXAZOLE
     Indication: PRODUCT USED FOR UNKNOWN INDICATION
     Dosage: 1.92 G, Q6H
     Route: 065
  42. TACROLIMUS. [Concomitant]
     Active Substance: TACROLIMUS
     Dosage: 1 MG, QD
     Route: 065
     Dates: start: 20150820, end: 20150822
  43. PREDNISONE. [Concomitant]
     Active Substance: PREDNISONE
     Dosage: 30 MG, QD
     Route: 065
     Dates: start: 20150824, end: 20150826
  44. PREDNISONE. [Concomitant]
     Active Substance: PREDNISONE
     Dosage: 20 MG, QD
     Route: 065
     Dates: start: 20150826, end: 20150827
  45. VANCOMYCIN HYDROCHLORIDE. [Concomitant]
     Active Substance: VANCOMYCIN HYDROCHLORIDE
     Indication: ANTI-INFECTIVE THERAPY
     Dosage: 1000 MG, Q12H
     Route: 042
     Dates: start: 20150624, end: 20150626
  46. VANCOMYCIN HYDROCHLORIDE. [Concomitant]
     Active Substance: VANCOMYCIN HYDROCHLORIDE
     Dosage: 500 MG, Q12H
     Route: 042
     Dates: start: 20150623, end: 20150624
  47. CEFOPERAZONE SODIUM AND TAZOBACTAM SODIUM [Concomitant]
     Active Substance: CEFOPERAZONE\TAZOBACTAM SODIUM
     Dosage: 2500 MG, BID
     Route: 042
     Dates: start: 20150612, end: 20150619
  48. AMPHOTERICINE B, LIPOSOME [Concomitant]
     Active Substance: AMPHOTERICIN B
     Dosage: 15 MG, QD
     Route: 042
     Dates: start: 20150701, end: 20150701
  49. POTASSIUM CHLORIDE. [Concomitant]
     Active Substance: POTASSIUM CHLORIDE
     Dosage: 10 ML, QD
     Route: 042
     Dates: start: 20150709, end: 20150713
  50. POTASSIUM CHLORIDE. [Concomitant]
     Active Substance: POTASSIUM CHLORIDE
     Dosage: 10 ML, QD
     Route: 042
     Dates: start: 20150723, end: 20150724
  51. ALPROSTADIL. [Concomitant]
     Active Substance: ALPROSTADIL
     Dosage: 10 UG, QD
     Route: 042
     Dates: start: 20150626
  52. AMBROXOL HYDROCHLORIDE [Concomitant]
     Active Substance: AMBROXOL HYDROCHLORIDE
     Dosage: 90 MG, TID
     Route: 042
     Dates: start: 20150626, end: 20150713
  53. AMBROXOL HYDROCHLORIDE [Concomitant]
     Active Substance: AMBROXOL HYDROCHLORIDE
     Dosage: 30 MG, BID
     Route: 042
     Dates: start: 20151016, end: 20151021
  54. CEFOPERAZONE [Concomitant]
     Active Substance: CEFOPERAZONE
     Dosage: 2500 MG, BID
     Route: 042
     Dates: start: 20150713
  55. DEXAMETHASONE SODIUM PHOSPHATE. [Concomitant]
     Active Substance: DEXAMETHASONE SODIUM PHOSPHATE
     Indication: HYPERSENSITIVITY
     Dosage: 10 MG, QD
     Route: 042
     Dates: start: 20150612, end: 20150612
  56. ERYTHROCYTES [Concomitant]
     Active Substance: HUMAN RED BLOOD CELL
     Indication: RED BLOOD CELL COUNT DECREASED
     Dosage: 1.5 IU, TID
     Route: 060
     Dates: start: 20150613, end: 20150613
  57. FENTANYL CITRATE. [Concomitant]
     Active Substance: FENTANYL CITRATE
     Dosage: 0.1 MG, QD
     Route: 030
     Dates: start: 20150703, end: 20150703
  58. FUDOSTEINE [Concomitant]
     Active Substance: FUDOSTEINE
     Indication: COUGH
     Dosage: 400 MG, TID
     Route: 048
     Dates: start: 20150724, end: 20151016
  59. FUROSEMIDE. [Concomitant]
     Active Substance: FUROSEMIDE
     Dosage: 10 MG, TID
     Route: 042
     Dates: start: 20150627, end: 20150627
  60. FUROSEMIDE. [Concomitant]
     Active Substance: FUROSEMIDE
     Dosage: 10 MG, QD
     Route: 042
     Dates: start: 20150706, end: 20150708
  61. GANCICLOVIR. [Concomitant]
     Active Substance: GANCICLOVIR
     Indication: ANTIVIRAL TREATMENT
     Dosage: 250 MG, Q12H
     Route: 042
     Dates: start: 20150622, end: 20150701
  62. HUMAN IMMUNOGLOBULIN [Concomitant]
     Active Substance: HUMAN IMMUNOGLOBULIN G
     Dosage: 5000 MG, QD
     Route: 042
     Dates: start: 20150930, end: 20150930
  63. INSULIN [Concomitant]
     Active Substance: INSULIN NOS
     Dosage: 6 IU, QD (8 IU, QD SUBCUTANEOUS INJECTION)
     Route: 042
     Dates: start: 20150627, end: 20150627
  64. INSULIN [Concomitant]
     Active Substance: INSULIN NOS
     Dosage: 8 IU, QD
     Route: 058
     Dates: start: 20150627, end: 20150627
  65. INSULIN [Concomitant]
     Active Substance: INSULIN NOS
     Dosage: 6 IU, QD
     Route: 058
     Dates: start: 20150903, end: 20150903
  66. LEUCOGEN [Concomitant]
     Active Substance: LEUCOGEN
     Indication: PLATELET DISORDER
  67. METOCLOPRAMIDE HYDROCHLORIDE. [Concomitant]
     Active Substance: METOCLOPRAMIDE HYDROCHLORIDE
     Indication: ANTIEMETIC SUPPORTIVE CARE
     Dosage: 10 MG, QD
     Route: 030
     Dates: start: 20150703, end: 20150703
  68. MIDAZOLAM [Concomitant]
     Active Substance: MIDAZOLAM HYDROCHLORIDE
     Dosage: 3 MG, QD
     Route: 042
     Dates: start: 20150712, end: 20150713
  69. MULTI VITAMIN [Concomitant]
     Active Substance: VITAMINS
     Dosage: 1 OT, QD
     Route: 048
     Dates: start: 20150825
  70. OMEPRAZOLE. [Concomitant]
     Active Substance: OMEPRAZOLE
     Dosage: 40 MG, QD
     Route: 042
     Dates: start: 20150826, end: 20150921
  71. PANTOPRAZOLE SODIUM. [Concomitant]
     Active Substance: PANTOPRAZOLE SODIUM
     Indication: ANTACID THERAPY
     Dosage: 100 ML, BID
     Route: 042
     Dates: start: 20150718, end: 20150723
  72. POTASSIUM CHLORIDE. [Concomitant]
     Active Substance: POTASSIUM CHLORIDE
     Dosage: 2000 MG, TID
     Route: 048
     Dates: start: 20150705, end: 20150713
  73. RABEPRAZOLE SODIUM. [Concomitant]
     Active Substance: RABEPRAZOLE SODIUM
     Dosage: 20 MG, QD
     Route: 048
     Dates: start: 20151021
  74. RECOMBINANT HUMAN ERYTHROPOIETIN [Concomitant]
     Active Substance: ERYTHROPOIETIN
     Indication: RED BLOOD CELL ABNORMALITY
     Dosage: 10000 IU, BIW
     Route: 058
     Dates: start: 20150613, end: 20150613
  75. SODIUM GLYCEROPHOSPHATE [Concomitant]
     Active Substance: SODIUM GLYCEROPHOSPHATE
     Dosage: 10 ML, QD
     Route: 042
     Dates: start: 20151005, end: 20151006
  76. BASILIXIMAB [Concomitant]
     Active Substance: BASILIXIMAB
     Dosage: 20 MG, QD
     Route: 065
     Dates: start: 20150616, end: 20150616
  77. SUCCINIC ACID [Concomitant]
     Active Substance: SUCCINIC ACID
     Indication: PROPHYLAXIS
     Dosage: 0.5 G, QD
     Route: 065
     Dates: start: 20150827
  78. CICLOSPORIN [Concomitant]
     Active Substance: CYCLOSPORINE
     Indication: PRODUCT USED FOR UNKNOWN INDICATION
     Dosage: 50 MG, QD
     Route: 048
     Dates: start: 20150615, end: 20150616
  79. CICLOSPORIN [Concomitant]
     Active Substance: CYCLOSPORINE
     Dosage: 50 MG, QD
     Route: 048
     Dates: start: 20151029
  80. LACTULOSE. [Concomitant]
     Active Substance: LACTULOSE
     Indication: CONSTIPATION
     Dosage: 15 ML, BID
     Route: 048
     Dates: start: 20150906, end: 20150923
  81. LYSINE ACETYLSALICYLATE [Concomitant]
     Active Substance: ASPIRIN DL-LYSINE
     Dosage: 900 MG, QD
     Route: 065
     Dates: start: 20150624, end: 20150624
  82. MOSAPRIDE CITRATE [Concomitant]
     Active Substance: MOSAPRIDE CITRATE
     Dosage: 5 MG, TID
     Route: 048
     Dates: start: 20151111
  83. POSACONAZOLE [Concomitant]
     Active Substance: POSACONAZOLE
     Dosage: 5 ML, BID
     Route: 048
     Dates: start: 20151003, end: 20151006
  84. POSACONAZOLE [Concomitant]
     Active Substance: POSACONAZOLE
     Dosage: 5 ML, BID
     Route: 048
     Dates: start: 20151006, end: 20151030
  85. MYFORTIC [Suspect]
     Active Substance: MYCOPHENOLATE SODIUM
     Indication: PROPHYLAXIS AGAINST TRANSPLANT REJECTION
     Dosage: 1080 MG, QD
     Route: 048
     Dates: start: 20150616, end: 20150621
  86. MYFORTIC [Suspect]
     Active Substance: MYCOPHENOLATE SODIUM
     Dosage: 360 MG, QD
     Route: 065
     Dates: start: 20150717, end: 20150720
  87. TACROLIMUS. [Concomitant]
     Active Substance: TACROLIMUS
     Dosage: 4 MG, QD
     Route: 065
     Dates: start: 20150617, end: 20150619
  88. PREDNISONE. [Concomitant]
     Active Substance: PREDNISONE
     Dosage: 20 MG, QD
     Route: 065
     Dates: start: 20150620, end: 20150622
  89. PREDNISONE. [Concomitant]
     Active Substance: PREDNISONE
     Dosage: 40 MG, QD
     Route: 065
     Dates: start: 20150822, end: 20150824
  90. PREDNISONE. [Concomitant]
     Active Substance: PREDNISONE
     Dosage: 36 MG, QD
     Route: 065
     Dates: start: 20151023, end: 20151029
  91. SOLU?MEDROL [Concomitant]
     Active Substance: METHYLPREDNISOLONE SODIUM SUCCINATE
     Indication: ANTIINFLAMMATORY THERAPY
     Dosage: 500 MG, QD
     Route: 065
     Dates: start: 20150612, end: 20150612
  92. SOLU?MEDROL [Concomitant]
     Active Substance: METHYLPREDNISOLONE SODIUM SUCCINATE
     Indication: PULMONARY OEDEMA
     Dosage: 90 MG, QD
     Route: 065
     Dates: start: 20150613, end: 20150613
  93. CEFOPERAZONE SODIUM AND TAZOBACTAM SODIUM [Concomitant]
     Active Substance: CEFOPERAZONE\TAZOBACTAM SODIUM
     Dosage: 2500 MG, BID
     Route: 042
     Dates: start: 20150721, end: 20150721
  94. POTASSIUM CHLORIDE. [Concomitant]
     Active Substance: POTASSIUM CHLORIDE
     Dosage: 15 ML, BID
     Route: 042
     Dates: start: 20150722, end: 20150722
  95. POTASSIUM CHLORIDE. [Concomitant]
     Active Substance: POTASSIUM CHLORIDE
     Dosage: 50 ML, QD
     Route: 042
     Dates: start: 20150828, end: 20150918
  96. AMBROXOL HYDROCHLORIDE [Concomitant]
     Active Substance: AMBROXOL HYDROCHLORIDE
     Indication: PRODUCTIVE COUGH
     Dosage: 90 MG, BID
     Route: 042
     Dates: start: 20150612, end: 20150713
  97. SODIUM CHLORIDE. [Concomitant]
     Active Substance: SODIUM CHLORIDE
     Dosage: 1000 MG, TID
     Route: 048
     Dates: start: 20150722, end: 20151008
  98. CALCIUM CHLORIDE//CALCIUM CHLORIDE HEXAHYDRATE [Concomitant]
     Indication: MINERAL SUPPLEMENTATION
     Dosage: 500 MG, QD
     Route: 042
     Dates: start: 20150627, end: 20150627
  99. CALCIUM CHLORIDE//CALCIUM CHLORIDE HEXAHYDRATE [Concomitant]
     Dosage: 500 MG, QD
     Route: 042
     Dates: start: 20150701, end: 20150701
  100. CEFOPERAZONE [Concomitant]
     Active Substance: CEFOPERAZONE
     Dosage: 2500 MG, QD
     Route: 042
     Dates: start: 20150612, end: 20150619
  101. DIISOPROPYLAMINE DICHLOROACETATE [Concomitant]
     Dosage: 80 MG, BID
     Route: 042
     Dates: start: 20150613
  102. SULFAMETHOXAZOLE [Concomitant]
     Active Substance: SULFAMETHOXAZOLE
     Indication: INFECTION
     Dosage: 960 MG, Q6H
     Route: 048
     Dates: start: 20150624, end: 20150624
  103. DEXMEDETOMIDINE HYDROCHLORIDE. [Concomitant]
     Active Substance: DEXMEDETOMIDINE HYDROCHLORIDE
     Indication: BLOOD PRESSURE INCREASED
     Dosage: 300 MG, PRN
     Route: 042
     Dates: start: 20150627, end: 20150709
  104. ESMOLOL HYDROCHLORIDE. [Concomitant]
     Active Substance: ESMOLOL HYDROCHLORIDE
     Dosage: 300 MG, PRN
     Route: 042
     Dates: start: 20150627, end: 20150629
  105. ESTAZOLAM. [Concomitant]
     Active Substance: ESTAZOLAM
     Dosage: 0.5 MG, QD
     Route: 048
     Dates: start: 20150824
  106. FUROSEMIDE. [Concomitant]
     Active Substance: FUROSEMIDE
     Indication: DIURETIC THERAPY
     Dosage: 5 MG, QD
     Route: 042
     Dates: start: 20150626, end: 20150626
  107. FUROSEMIDE. [Concomitant]
     Active Substance: FUROSEMIDE
     Dosage: 20 MG, QD
     Route: 042
     Dates: start: 20150630, end: 20150702
  108. IMIPENEM [Concomitant]
     Active Substance: IMIPENEM
     Dosage: 1000 MG, Q12H
     Route: 042
     Dates: start: 20150806, end: 20150810
  109. INSULIN [Concomitant]
     Active Substance: INSULIN NOS
     Indication: DIABETES MELLITUS MANAGEMENT
     Dosage: 10 IU, QD
     Route: 058
     Dates: start: 20150612, end: 20150612
  110. INSULIN [Concomitant]
     Active Substance: INSULIN NOS
     Dosage: 8 IU, BID
     Route: 058
     Dates: start: 20150616, end: 20150616
  111. INSULIN [Concomitant]
     Active Substance: INSULIN NOS
     Dosage: 8 IU, QD
     Route: 058
     Dates: start: 20150819, end: 20150820
  112. INSULIN [Concomitant]
     Active Substance: INSULIN NOS
     Dosage: 8 IU, QD
     Route: 058
     Dates: start: 20150916, end: 20150916
  113. METOPROLOL TARTRATE. [Concomitant]
     Active Substance: METOPROLOL TARTRATE
     Dosage: 12.5 MG, QD
     Route: 048
     Dates: start: 20150825, end: 20150826
  114. NIFEDIPINE. [Concomitant]
     Active Substance: NIFEDIPINE
     Dosage: 30 MG, QD
     Route: 048
     Dates: start: 20150703, end: 20150709
  115. OMEPRAZOLE. [Concomitant]
     Active Substance: OMEPRAZOLE
     Indication: ANTACID THERAPY
     Dosage: 40 MG, Q12H
     Route: 042
     Dates: start: 20150723, end: 20150826
  116. POTASSIUM CHLORIDE. [Concomitant]
     Active Substance: POTASSIUM CHLORIDE
     Dosage: 30 ML, QD
     Route: 048
     Dates: start: 20150707, end: 20150707
  117. POTASSIUM CHLORIDE. [Concomitant]
     Active Substance: POTASSIUM CHLORIDE
     Dosage: 10 ML, BID
     Route: 048
     Dates: start: 20151002, end: 20151022
  118. RECOMBINANT HUMAN ERYTHROPOIETIN [Concomitant]
     Active Substance: ERYTHROPOIETIN
     Indication: ANAEMIA
     Dosage: 2 MG, QD
     Route: 042
     Dates: start: 20150928, end: 20151019
  119. RECOMBINANT HUMAN ERYTHROPOIETIN [Concomitant]
     Active Substance: ERYTHROPOIETIN
     Dosage: 15000 IU, QD
     Route: 058
     Dates: start: 20151104, end: 20151123
  120. SODIUM GLYCEROPHOSPHATE [Concomitant]
     Active Substance: SODIUM GLYCEROPHOSPHATE
     Indication: MINERAL SUPPLEMENTATION
     Dosage: 2160 MG, QD
     Route: 042
     Dates: start: 20150622, end: 20150626
  121. METHYLPREDNISOLONE. [Concomitant]
     Active Substance: METHYLPREDNISOLONE
     Indication: PROPHYLAXIS AGAINST TRANSPLANT REJECTION
     Dosage: 500 MG, QD
     Route: 065
     Dates: start: 20150612, end: 20150612
  122. METHYLPREDNISOLONE. [Concomitant]
     Active Substance: METHYLPREDNISOLONE
     Dosage: 50 MG, QD
     Route: 065
     Dates: start: 20150615, end: 20150616
  123. METHYLPREDNISOLONE. [Concomitant]
     Active Substance: METHYLPREDNISOLONE
     Dosage: 120 MG, QD
     Route: 065
     Dates: start: 20150623, end: 20150626
  124. METHYLPREDNISOLONE. [Concomitant]
     Active Substance: METHYLPREDNISOLONE
     Dosage: 120 MG, QD
     Route: 065
     Dates: start: 20150626, end: 20150630
  125. METHYLPREDNISOLONE. [Concomitant]
     Active Substance: METHYLPREDNISOLONE
     Dosage: 80 MG, QD
     Route: 065
     Dates: start: 20150630, end: 20150713
  126. METHYLPREDNISOLONE. [Concomitant]
     Active Substance: METHYLPREDNISOLONE
     Dosage: 40 MG, QD
     Route: 065
     Dates: start: 20150718, end: 20150721
  127. METHYLPREDNISOLONE. [Concomitant]
     Active Substance: METHYLPREDNISOLONE
     Dosage: 60 MG, QD
     Route: 065
     Dates: start: 20150728
  128. MYCOPHENOLATE SODIUM [Concomitant]
     Active Substance: MYCOPHENOLATE SODIUM
     Dosage: 360 MG, QD
     Route: 065
     Dates: start: 20150717, end: 20150720
  129. DIAMMONIUM GLYCYRRHIZINATE [Concomitant]
     Active Substance: HERBALS\DIAMMONIUM GLYCYRRHIZINATE
     Indication: PROPHYLAXIS
     Dosage: 150 MG, TID
     Route: 065
     Dates: start: 20151021
  130. DIAMMONIUM GLYCYRRHIZINATE [Concomitant]
     Active Substance: HERBALS\DIAMMONIUM GLYCYRRHIZINATE
     Dosage: 150 MG, TID
     Route: 048
     Dates: start: 20150824, end: 20150909
  131. DEQUALINIUM CHLORIDE W/TYROTHRICIN [Concomitant]
     Indication: ANTI-INFECTIVE THERAPY
     Dosage: 1.25 MG, TID
     Route: 060
     Dates: start: 20150806, end: 20150923
  132. ENEMA (SODIUM PHOSPHATE, DIBASIC\SODIUM PHOSPHATE, MONOBASIC) [Concomitant]
     Active Substance: SODIUM PHOSPHATE, DIBASIC\SODIUM PHOSPHATE, MONOBASIC
     Dosage: 40 ML, QD (ANALLY)
     Route: 065
     Dates: start: 20151108, end: 20151108
  133. LACTULOSE. [Concomitant]
     Active Substance: LACTULOSE
     Dosage: 75 ML, QD (BOWEL LAVAGE)
     Route: 065
     Dates: start: 20151111, end: 20151111
  134. INSULIN GLARGINE [Concomitant]
     Active Substance: INSULIN GLARGINE
     Indication: BLOOD GLUCOSE
     Dosage: 6 IU, QN
     Route: 058
     Dates: start: 20151116
  135. MYFORTIC [Suspect]
     Active Substance: MYCOPHENOLATE SODIUM
     Indication: RENAL TRANSPLANT
     Dosage: 1440 MG, QD
     Route: 048
     Dates: start: 20150612
  136. TACROLIMUS. [Concomitant]
     Active Substance: TACROLIMUS
     Dosage: 2 MG, QD
     Route: 065
     Dates: start: 20150622, end: 20150623
  137. TACROLIMUS. [Concomitant]
     Active Substance: TACROLIMUS
     Dosage: 1 MG, QD
     Route: 065
     Dates: start: 20150623, end: 20150624
  138. TACROLIMUS. [Concomitant]
     Active Substance: TACROLIMUS
     Dosage: 1 MG, QD
     Route: 065
     Dates: start: 20150824, end: 20150827
  139. PREDNISONE. [Concomitant]
     Active Substance: PREDNISONE
     Dosage: 45 MG, QD
     Route: 065
     Dates: start: 20150912, end: 20150928
  140. PREDNISONE. [Concomitant]
     Active Substance: PREDNISONE
     Dosage: 20 MG, QD
     Route: 065
     Dates: start: 20151116
  141. VANCOMYCIN HYDROCHLORIDE. [Concomitant]
     Active Substance: VANCOMYCIN HYDROCHLORIDE
     Dosage: 500 MG, Q12H
     Route: 042
     Dates: start: 20150703, end: 20150708
  142. SOLU?MEDROL [Concomitant]
     Active Substance: METHYLPREDNISOLONE SODIUM SUCCINATE
     Dosage: 50 MG, QD
     Route: 065
     Dates: start: 20150615, end: 20150616
  143. SOLU?MEDROL [Concomitant]
     Active Substance: METHYLPREDNISOLONE SODIUM SUCCINATE
     Dosage: 40 MG, QD
     Route: 065
     Dates: start: 20150827, end: 20150909
  144. AMPHOTERICINE B, LIPOSOME [Concomitant]
     Active Substance: AMPHOTERICIN B
     Indication: ANTIFUNGAL TREATMENT
     Dosage: 45 MG, QD
     Route: 042
     Dates: start: 20150703, end: 20150703
  145. AMPHOTERICINE B, LIPOSOME [Concomitant]
     Active Substance: AMPHOTERICIN B
     Dosage: 40 MG, QD
     Route: 042
     Dates: start: 20150822, end: 20150921
  146. POTASSIUM CHLORIDE. [Concomitant]
     Active Substance: POTASSIUM CHLORIDE
     Dosage: 20 ML, QD
     Route: 042
     Dates: start: 20150701, end: 20150701
  147. ACARBOSE. [Concomitant]
     Active Substance: ACARBOSE
     Indication: BLOOD GLUCOSE INCREASED
     Dosage: 50 MG, TID
     Route: 048
     Dates: start: 20150626, end: 20150626
  148. AMBROXOL HYDROCHLORIDE [Concomitant]
     Active Substance: AMBROXOL HYDROCHLORIDE
     Dosage: 60 MG, BID
     Route: 042
     Dates: start: 20150713
  149. CALCIUM CARBONATE. [Concomitant]
     Active Substance: CALCIUM CARBONATE
     Dosage: 600 MG, QD
     Route: 048
     Dates: start: 20150724
  150. ERYTHROCYTES [Concomitant]
     Active Substance: HUMAN RED BLOOD CELL
     Dosage: 2 U, QD
     Route: 042
     Dates: start: 20150717, end: 20150717
  151. ESOMEPRAZOLE SODIUM. [Concomitant]
     Active Substance: ESOMEPRAZOLE SODIUM
     Dosage: 40 MG, QD
     Route: 042
     Dates: start: 20150706, end: 20150713
  152. INSULIN [Concomitant]
     Active Substance: INSULIN NOS
     Dosage: 45 IU, QD
     Route: 042
     Dates: start: 20150612, end: 20150613
  153. INSULIN [Concomitant]
     Active Substance: INSULIN NOS
     Dosage: 10 IU, BID
     Route: 058
     Dates: start: 20150623, end: 20150623
  154. INSULIN [Concomitant]
     Active Substance: INSULIN NOS
     Dosage: 6 IU, QD
     Route: 058
     Dates: start: 20150625, end: 20150625
  155. INSULIN [Concomitant]
     Active Substance: INSULIN NOS
     Dosage: 8 IU, QD
     Route: 058
     Dates: start: 20151115, end: 20151115
  156. IRON SUCROSE [Concomitant]
     Active Substance: IRON SUCROSE
     Dosage: 200 MG, QOD
     Route: 042
     Dates: start: 20150831, end: 20150921
  157. METOPROLOL TARTRATE. [Concomitant]
     Active Substance: METOPROLOL TARTRATE
     Dosage: 12.5 MG, BID
     Route: 048
     Dates: start: 20150626, end: 20150626
  158. METOPROLOL TARTRATE. [Concomitant]
     Active Substance: METOPROLOL TARTRATE
     Dosage: 25 MG, BID
     Route: 048
     Dates: start: 20151002
  159. MIDAZOLAM [Concomitant]
     Active Substance: MIDAZOLAM HYDROCHLORIDE
     Indication: SEDATION
     Dosage: 50 MG, PRN
     Route: 042
     Dates: start: 20150628, end: 20150709
  160. MULTI VITAMIN [Concomitant]
     Active Substance: VITAMINS
     Indication: VITAMIN SUPPLEMENTATION
     Dosage: 1 OT, QD
     Route: 048
     Dates: start: 20150619, end: 20150626
  161. NIFEDIPINE. [Concomitant]
     Active Substance: NIFEDIPINE
     Dosage: 30 MG, Q12H
     Route: 048
     Dates: start: 20150709, end: 20150713
  162. POTASSIUM CHLORIDE. [Concomitant]
     Active Substance: POTASSIUM CHLORIDE
     Dosage: 10 ML (AT MEAL), UNK
     Route: 048
     Dates: start: 20150729, end: 20151002
  163. PROMETHAZINE HYDROCHLORIDE. [Concomitant]
     Active Substance: PROMETHAZINE HYDROCHLORIDE
     Dosage: 25 MG, QD
     Route: 042
     Dates: start: 20150616, end: 20150616
  164. SODIUM CHLORIDE. [Concomitant]
     Active Substance: SODIUM CHLORIDE
     Indication: MINERAL SUPPLEMENTATION
     Dosage: 1000 MG, BID
     Route: 048
     Dates: start: 20150720, end: 20150722
  165. VANCOMYCIN HYDROCHLORIDE. [Concomitant]
     Active Substance: VANCOMYCIN HYDROCHLORIDE
     Dosage: 500 MG, Q12H
     Route: 042
     Dates: start: 20150703, end: 20150708
  166. VITAMIN C [Concomitant]
     Active Substance: ASCORBIC ACID
     Indication: VITAMIN SUPPLEMENTATION
     Dosage: 3000 MG, QD
     Route: 042
     Dates: start: 20150626, end: 20150705
  167. MYCOPHENOLATE SODIUM [Concomitant]
     Active Substance: MYCOPHENOLATE SODIUM
     Dosage: 360 MG, QD
     Route: 065
     Dates: start: 20150623, end: 20150624
  168. POLYENE PHOSPHATIDYLCHOLINE [Concomitant]
     Active Substance: PHOSPHOLIPID
     Indication: PROPHYLAXIS
     Dosage: 10 ML, QD
     Route: 005
     Dates: start: 20150824
  169. POLYENE PHOSPHATIDYLCHOLINE [Concomitant]
     Active Substance: PHOSPHOLIPID
     Dosage: UNK, TID
     Route: 065
     Dates: start: 20151121
  170. POLYENE PHOSPHATIDYLCHOLINE [Concomitant]
     Active Substance: PHOSPHOLIPID
     Dosage: 232.5 MG, QD
     Route: 042
     Dates: start: 20150909, end: 20151021
  171. PREDNISONE. [Concomitant]
     Active Substance: PREDNISONE
     Dosage: 40 MG, QD
     Route: 065
     Dates: start: 20150928, end: 20151014
  172. PREDNISONE. [Concomitant]
     Active Substance: PREDNISONE
     Dosage: 28 MG, QD
     Route: 065
     Dates: start: 20151029, end: 20151105
  173. VANCOMYCIN HYDROCHLORIDE. [Concomitant]
     Active Substance: VANCOMYCIN HYDROCHLORIDE
     Dosage: 500 MG, Q12H
     Route: 042
     Dates: start: 20150629, end: 20150703
  174. AMPHOTERICINE B, LIPOSOME [Concomitant]
     Active Substance: AMPHOTERICIN B
     Dosage: 30 MG, QD
     Route: 042
     Dates: start: 20150702, end: 20150702
  175. AMPHOTERICINE B, LIPOSOME [Concomitant]
     Active Substance: AMPHOTERICIN B
     Dosage: 6 MG, QD
     Route: 042
     Dates: start: 20150630, end: 20150630
  176. ALPROSTADIL. [Concomitant]
     Active Substance: ALPROSTADIL
     Indication: RENAL DISORDER
     Dosage: 10 UG, QD
     Route: 042
     Dates: start: 20150612, end: 20150716
  177. AMBROXOL HYDROCHLORIDE [Concomitant]
     Active Substance: AMBROXOL HYDROCHLORIDE
     Dosage: 30 MG, TID (SPRAY INHALATION)
     Route: 055
     Dates: start: 20150626, end: 20150628
  178. BUDESONIDE. [Concomitant]
     Active Substance: BUDESONIDE
     Dosage: 1 MG, BID (SPRAYING)
     Route: 065
     Dates: start: 20150713
  179. CALCITRIOL. [Concomitant]
     Active Substance: CALCITRIOL
     Indication: MINERAL SUPPLEMENTATION
     Dosage: 0.25 UG, QD
     Route: 048
     Dates: start: 20150613, end: 20150626
  180. CEFOPERAZONE [Concomitant]
     Active Substance: CEFOPERAZONE
     Indication: INFECTION
     Dosage: 500 MG, QD
     Route: 042
     Dates: start: 20150612, end: 20150612
  181. CEFOPERAZONE [Concomitant]
     Active Substance: CEFOPERAZONE
     Dosage: 2500 MG, BID
     Route: 042
     Dates: start: 20150721, end: 20150721
  182. ESOMEPRAZOLE SODIUM. [Concomitant]
     Active Substance: ESOMEPRAZOLE SODIUM
     Dosage: 40 MG, Q8H
     Route: 042
     Dates: start: 20150703, end: 20150706
  183. FUROSEMIDE. [Concomitant]
     Active Substance: FUROSEMIDE
     Dosage: 20 MG, QD
     Route: 042
     Dates: start: 20150628, end: 20150628
  184. FUROSEMIDE. [Concomitant]
     Active Substance: FUROSEMIDE
     Dosage: 20 MG, QD
     Route: 042
     Dates: start: 20150701, end: 20150705
  185. INSULIN [Concomitant]
     Active Substance: INSULIN NOS
     Dosage: 6 U, BID
     Route: 058
     Dates: start: 20150717, end: 20150717
  186. INSULIN [Concomitant]
     Active Substance: INSULIN NOS
     Dosage: 10 IU, QD
     Route: 058
     Dates: start: 20150810, end: 20150811
  187. INSULIN [Concomitant]
     Active Substance: INSULIN NOS
     Dosage: 6 IU, QD
     Route: 058
     Dates: start: 20150905, end: 20150905
  188. INVERT SUGAR [Concomitant]
     Active Substance: INVERT SUGAR
     Dosage: 500 ML, QD
     Route: 042
     Dates: start: 20150622, end: 20150626
  189. LIDOCAINE HYDROCHLORIDE. [Concomitant]
     Active Substance: LIDOCAINE HYDROCHLORIDE
     Indication: LOCAL ANAESTHESIA
     Dosage: 100 MG, QD (400 MG, QD)
     Route: 065
     Dates: start: 20150628, end: 20150628
  190. METOPROLOL TARTRATE. [Concomitant]
     Active Substance: METOPROLOL TARTRATE
     Dosage: 12.5 MG, BID
     Route: 048
     Dates: start: 20151001, end: 20151002
  191. MOSAPRIDE CITRATE [Concomitant]
     Active Substance: MOSAPRIDE CITRATE
     Indication: GASTRIC DISORDER
     Dosage: 5 MG, TID
     Route: 048
     Dates: start: 20150629, end: 20150703
  192. NICARDIPINE HYDROCHLORIDE. [Concomitant]
     Active Substance: NICARDIPINE HYDROCHLORIDE
     Dosage: 2 MG, PRN
     Route: 042
     Dates: start: 20150707, end: 20150712
  193. NORADRENALINE//NOREPINEPHRINE BITARTRATE [Concomitant]
     Indication: BLOOD PRESSURE DECREASED
     Dosage: 2 MG, QD
     Route: 042
     Dates: start: 20150628, end: 20150628
  194. NORADRENALINE//NOREPINEPHRINE BITARTRATE [Concomitant]
     Dosage: 2 MG, PRN
     Route: 042
     Dates: start: 20150628, end: 20150702
  195. PANTOPRAZOLE SODIUM. [Concomitant]
     Active Substance: PANTOPRAZOLE SODIUM
     Dosage: 40 MG, QD
     Route: 042
     Dates: start: 20150928, end: 20151021
  196. SODIUM GLYCEROPHOSPHATE [Concomitant]
     Active Substance: SODIUM GLYCEROPHOSPHATE
     Dosage: 10 ML, QD
     Route: 042
     Dates: start: 20151012, end: 20151021
  197. SODIUM GLYCEROPHOSPHATE [Concomitant]
     Active Substance: SODIUM GLYCEROPHOSPHATE
     Dosage: 10 ML, BID
     Route: 048
     Dates: start: 20150930, end: 20150930
  198. TERBUTALINE SULFATE. [Concomitant]
     Active Substance: TERBUTALINE SULFATE
     Indication: TRACHEAL DILATATION
     Dosage: 5 MG, BID (SPRAYING)
     Route: 065
     Dates: start: 20150612, end: 20150626
  199. TERBUTALINE SULFATE. [Concomitant]
     Active Substance: TERBUTALINE SULFATE
     Dosage: 5 MG, TID (SPRAYING)
     Route: 065
     Dates: start: 20150626, end: 20150628
  200. VANCOMYCIN HYDROCHLORIDE. [Concomitant]
     Active Substance: VANCOMYCIN HYDROCHLORIDE
     Dosage: 500 MG, Q12H
     Route: 042
     Dates: start: 20150626, end: 20150629
  201. VORICONAZOLE. [Concomitant]
     Active Substance: VORICONAZOLE
     Indication: FUNGAL INFECTION
     Dosage: 200 MG, Q12H
     Route: 048
     Dates: start: 20150624, end: 20150708
  202. VORICONAZOLE. [Concomitant]
     Active Substance: VORICONAZOLE
     Dosage: 200 MG, Q12H
     Route: 048
     Dates: start: 20150921, end: 20150925
  203. CICLOSPORIN [Concomitant]
     Active Substance: CYCLOSPORINE
     Dosage: 25 MG, QD
     Route: 065
     Dates: start: 20151014, end: 20151029
  204. ADEMETIONINE 1,4?BUTANEDISULFONATE [Concomitant]
     Indication: GALLBLADDER DISORDER
     Dosage: 500 MG, QD
     Route: 042
     Dates: start: 20150928, end: 20151021
  205. ENEMA (SODIUM PHOSPHATE, DIBASIC\SODIUM PHOSPHATE, MONOBASIC) [Concomitant]
     Active Substance: SODIUM PHOSPHATE, DIBASIC\SODIUM PHOSPHATE, MONOBASIC
     Indication: LAXATIVE SUPPORTIVE CARE
     Dosage: 40 ML, QD (ANALLY)
     Route: 065
     Dates: start: 20150831, end: 20150831
  206. HAEMOCOAGULASE [Concomitant]
     Indication: HAEMOSTASIS
     Dosage: 1 IU, BID
     Route: 042
     Dates: start: 20150612, end: 20150615
  207. LACTULOSE. [Concomitant]
     Active Substance: LACTULOSE
     Dosage: 15 ML, BID
     Route: 048
     Dates: start: 20151102
  208. TRIMETAZIDINE DIHYDROCHLORIDE [Concomitant]
     Active Substance: TRIMETAZIDINE DIHYDROCHLORIDE
     Dosage: 20 MG, BID
     Route: 048
     Dates: start: 20151016
  209. POSACONAZOLE [Concomitant]
     Active Substance: POSACONAZOLE
     Indication: ANTIFUNGAL TREATMENT
     Dosage: 5 MG, TID
     Route: 048
     Dates: start: 20151001, end: 20151001
  210. POSACONAZOLE [Concomitant]
     Active Substance: POSACONAZOLE
     Dosage: 5 ML, TID
     Route: 048
     Dates: start: 20151030
  211. MYFORTIC [Suspect]
     Active Substance: MYCOPHENOLATE SODIUM
     Dosage: 360 MG, QD
     Route: 048
     Dates: start: 20150623, end: 20150624
  212. SIMULECT [Suspect]
     Active Substance: BASILIXIMAB
     Indication: RENAL TRANSPLANT
     Dosage: 20 MG, QD
     Route: 042
     Dates: start: 20150612
  213. TACROLIMUS. [Concomitant]
     Active Substance: TACROLIMUS
     Dosage: 1.5 MG, Q12H
     Route: 065
     Dates: start: 20150613
  214. SOLU?MEDROL [Concomitant]
     Active Substance: METHYLPREDNISOLONE SODIUM SUCCINATE
     Dosage: 80 MG, QD
     Route: 065
     Dates: start: 20150630, end: 20150713
  215. SOLU?MEDROL [Concomitant]
     Active Substance: METHYLPREDNISOLONE SODIUM SUCCINATE
     Dosage: 40 MG, QD
     Route: 065
     Dates: start: 20150718, end: 20150721
  216. SOLU?MEDROL [Concomitant]
     Active Substance: METHYLPREDNISOLONE SODIUM SUCCINATE
     Dosage: 60 MG, QD
     Route: 065
     Dates: start: 20150728
  217. SOLU?MEDROL [Concomitant]
     Active Substance: METHYLPREDNISOLONE SODIUM SUCCINATE
     Dosage: 1 MG, QD
     Route: 065
     Dates: start: 20150820
  218. CEFOPERAZONE SODIUM AND TAZOBACTAM SODIUM [Concomitant]
     Active Substance: CEFOPERAZONE\TAZOBACTAM SODIUM
     Indication: ANTIINFLAMMATORY THERAPY
     Dosage: 2500 MG, BID
     Route: 042
     Dates: start: 20150713, end: 20150716
  219. AMPHOTERICINE B, LIPOSOME [Concomitant]
     Active Substance: AMPHOTERICIN B
     Indication: ANTIINFLAMMATORY THERAPY
     Dosage: 40 MG, QD
     Route: 042
     Dates: start: 20150928, end: 20151030
  220. POTASSIUM CHLORIDE. [Concomitant]
     Active Substance: POTASSIUM CHLORIDE
     Indication: MINERAL SUPPLEMENTATION
     Dosage: 7 ML, QD
     Route: 042
     Dates: start: 20150627, end: 20150627
  221. POTASSIUM CHLORIDE. [Concomitant]
     Active Substance: POTASSIUM CHLORIDE
     Dosage: 15 ML, BID
     Route: 042
     Dates: start: 20150822, end: 20150822
  222. AMBROXOL HYDROCHLORIDE [Concomitant]
     Active Substance: AMBROXOL HYDROCHLORIDE
     Dosage: 30 MG, TID (SPRAYING)
     Route: 055
     Dates: start: 20150701, end: 20150713
  223. AMBROXOL HYDROCHLORIDE [Concomitant]
     Active Substance: AMBROXOL HYDROCHLORIDE
     Dosage: 60 MG, BID
     Route: 042
     Dates: start: 20150828, end: 20151016
  224. AZASETRON HYDROCHLORIDE [Concomitant]
     Active Substance: AZASETRON HYDROCHLORIDE
     Indication: ANTIEMETIC SUPPORTIVE CARE
     Dosage: 10 MG, QD
     Route: 042
     Dates: start: 20150703, end: 20150703
  225. BUDESONIDE. [Concomitant]
     Active Substance: BUDESONIDE
     Dosage: 1 MG, TID (SPRAYING)
     Route: 065
     Dates: start: 20150626, end: 20150628
  226. ERYTHROCYTES [Concomitant]
     Active Substance: HUMAN RED BLOOD CELL
     Dosage: 2 U, QD
     Route: 060
     Dates: start: 20150627, end: 20150627
  227. ESOMEPRAZOLE SODIUM. [Concomitant]
     Active Substance: ESOMEPRAZOLE SODIUM
     Indication: ANTACID THERAPY
     Dosage: 40 MG, QD
     Route: 042
     Dates: start: 20150626, end: 20150703
  228. FUDOSTEINE [Concomitant]
     Active Substance: FUDOSTEINE
     Dosage: 400 MG, TID
     Route: 048
     Dates: start: 20151021
  229. GANCICLOVIR. [Concomitant]
     Active Substance: GANCICLOVIR
     Indication: LUNG INFECTION
  230. HEPARIN SODIUM. [Concomitant]
     Active Substance: HEPARIN SODIUM
     Dosage: 12500 IU, QD
     Route: 042
     Dates: start: 20150628, end: 20150713
  231. HUMAN IMMUNOGLOBULIN [Concomitant]
     Active Substance: HUMAN IMMUNOGLOBULIN G
     Indication: IMMUNOGLOBULIN THERAPY
     Dosage: 10000 MG, QD
     Route: 042
     Dates: start: 20150628, end: 20150702
  232. IMIPENEM [Concomitant]
     Active Substance: IMIPENEM
     Dosage: 1000 MG, Q8H
     Route: 042
     Dates: start: 20150723
  233. IMIPENEM [Concomitant]
     Active Substance: IMIPENEM
     Dosage: 500 MG, Q8H
     Route: 042
     Dates: start: 20150902, end: 20150908
  234. INSULIN [Concomitant]
     Active Substance: INSULIN NOS
     Dosage: 50 IU, PRN
     Route: 042
     Dates: start: 20150628, end: 20150713
  235. INSULIN [Concomitant]
     Active Substance: INSULIN NOS
     Dosage: 6 IU, QD
     Route: 058
     Dates: start: 20150827, end: 20150827
  236. INSULIN [Concomitant]
     Active Substance: INSULIN NOS
     Dosage: 8 IU, QD
     Dates: start: 20150822, end: 20150823
  237. INSULIN [Concomitant]
     Active Substance: INSULIN NOS
     Dosage: 8 IU, QD
     Route: 058
     Dates: start: 20150829, end: 20150829
  238. MICAFUNGIN SODIUM [Concomitant]
     Active Substance: MICAFUNGIN SODIUM
     Indication: FUNGAL INFECTION
     Dosage: 150 MG, QD
     Route: 042
     Dates: start: 20150612, end: 20150626
  239. POTASSIUM CHLORIDE. [Concomitant]
     Active Substance: POTASSIUM CHLORIDE
     Indication: MINERAL SUPPLEMENTATION
     Dosage: 1000 MG, TID
     Route: 048
     Dates: start: 20150614, end: 20150615
  240. POTASSIUM CHLORIDE. [Concomitant]
     Active Substance: POTASSIUM CHLORIDE
     Dosage: 2000 MG, TID
     Route: 048
     Dates: start: 20150627, end: 20150627
  241. PROPOFOL. [Concomitant]
     Active Substance: PROPOFOL
     Dosage: 50 ML, PRN
     Route: 042
     Dates: start: 20150701, end: 20150702
  242. RABEPRAZOLE SODIUM. [Concomitant]
     Active Substance: RABEPRAZOLE SODIUM
     Indication: ANTACID THERAPY
     Dosage: 20 MG, QD
     Route: 048
     Dates: start: 20150619, end: 20150626
  243. SODIUM GLYCEROPHOSPHATE [Concomitant]
     Active Substance: SODIUM GLYCEROPHOSPHATE
     Dosage: 10 ML, QD
     Route: 042
     Dates: start: 20151102, end: 20151120
  244. VANCOMYCIN HYDROCHLORIDE. [Concomitant]
     Active Substance: VANCOMYCIN HYDROCHLORIDE
     Dosage: 1000 MG, Q12H
     Route: 042
     Dates: start: 20150624, end: 20150626
  245. METHYLPREDNISOLONE. [Concomitant]
     Active Substance: METHYLPREDNISOLONE
     Dosage: 0.3 G, TID
     Route: 065
  246. OMEPRAZOLE SODIUM [Concomitant]
     Active Substance: OMEPRAZOLE SODIUM
     Indication: PROPHYLAXIS
     Dosage: 40 MG, QD
     Route: 065
     Dates: start: 20150815
  247. CILASTATIN SODIUM [Concomitant]
     Active Substance: CILASTATIN SODIUM
     Indication: PRODUCT USED FOR UNKNOWN INDICATION
     Dosage: 1 G, Q8H
     Route: 065
  248. ENEMA (SODIUM PHOSPHATE, DIBASIC\SODIUM PHOSPHATE, MONOBASIC) [Concomitant]
     Active Substance: SODIUM PHOSPHATE, DIBASIC\SODIUM PHOSPHATE, MONOBASIC
     Dosage: 40 ML, BID (ANALLY)
     Route: 065
     Dates: start: 20151019, end: 20151019
  249. ENEMA (SODIUM PHOSPHATE, DIBASIC\SODIUM PHOSPHATE, MONOBASIC) [Concomitant]
     Active Substance: SODIUM PHOSPHATE, DIBASIC\SODIUM PHOSPHATE, MONOBASIC
     Dosage: 40 ML, QD (ANALLY)
     Route: 065
     Dates: start: 20151101, end: 20151101
  250. ENEMA (SODIUM PHOSPHATE, DIBASIC\SODIUM PHOSPHATE, MONOBASIC) [Concomitant]
     Active Substance: SODIUM PHOSPHATE, DIBASIC\SODIUM PHOSPHATE, MONOBASIC
     Dosage: 40 ML, QD (ANALLY)
     Route: 065
     Dates: start: 20151120, end: 20151120
  251. LYSINE ACETYLSALICYLATE [Concomitant]
     Active Substance: ASPIRIN DL-LYSINE
     Indication: PYREXIA
     Dosage: 900 MG, QD
     Route: 065
     Dates: start: 20150621, end: 20150621
  252. LYSINE ACETYLSALICYLATE [Concomitant]
     Active Substance: ASPIRIN DL-LYSINE
     Dosage: 900 MG, QD
     Route: 065
     Dates: start: 20150723, end: 20150723
  253. SPIRONOLACTONE. [Concomitant]
     Active Substance: SPIRONOLACTONE
     Indication: POLYURIA
     Dosage: 20 MG, BID
     Route: 048
     Dates: start: 20151014, end: 20151014
  254. DIISOPROPYLAMINE DICHLORACETATE [Concomitant]
     Indication: PROPHYLAXIS
     Dosage: 80 MG, BID
     Route: 042
     Dates: start: 20151109, end: 20151123
  255. POSACONAZOLE [Concomitant]
     Active Substance: POSACONAZOLE
     Dosage: 10 ML, BID
     Route: 048
     Dates: start: 20151003, end: 20151003
  256. TACROLIMUS. [Concomitant]
     Active Substance: TACROLIMUS
     Dosage: 0.5 MG, QD
     Route: 065
     Dates: start: 20150822, end: 20150824
  257. PREDNISONE. [Concomitant]
     Active Substance: PREDNISONE
     Indication: ANTIINFLAMMATORY THERAPY
     Dosage: 60 MG, QD
     Route: 065
     Dates: start: 20150616, end: 20150618
  258. PREDNISONE. [Concomitant]
     Active Substance: PREDNISONE
     Indication: TRANSPLANT REJECTION
     Dosage: 50 MG, QD
     Route: 065
     Dates: start: 20150618, end: 20150620
  259. PREDNISONE. [Concomitant]
     Active Substance: PREDNISONE
     Dosage: 24 MG, QD
     Route: 065
     Dates: start: 20151105, end: 20151116
  260. SOLU?MEDROL [Concomitant]
     Active Substance: METHYLPREDNISOLONE SODIUM SUCCINATE
     Dosage: 120 MG, QD
     Route: 065
     Dates: start: 20150623, end: 20150626
  261. CEFOPERAZONE SODIUM AND TAZOBACTAM SODIUM [Concomitant]
     Active Substance: CEFOPERAZONE\TAZOBACTAM SODIUM
     Dosage: 2500 MG, Q12H
     Route: 042
     Dates: start: 20150810, end: 20150824
  262. CEFOPERAZONE SODIUM AND TAZOBACTAM SODIUM [Concomitant]
     Active Substance: CEFOPERAZONE\TAZOBACTAM SODIUM
     Dosage: 2500 MG, BID
     Route: 042
     Dates: start: 20151119, end: 20151125
  263. AMPHOTERICINE B, LIPOSOME [Concomitant]
     Active Substance: AMPHOTERICIN B
     Dosage: 45 MG, QD
     Route: 042
     Dates: start: 20150704, end: 20150705
  264. POTASSIUM CHLORIDE. [Concomitant]
     Active Substance: POTASSIUM CHLORIDE
     Dosage: 30 ML, QD
     Route: 042
     Dates: start: 20150630, end: 20150630
  265. CALCITRIOL. [Concomitant]
     Active Substance: CALCITRIOL
     Dosage: 0.25 UG, QD
     Route: 048
     Dates: start: 20150724
  266. CALCIUM CARBONATE. [Concomitant]
     Active Substance: CALCIUM CARBONATE
     Indication: MINERAL SUPPLEMENTATION
     Dosage: 600 MG, QD
     Route: 048
     Dates: start: 20150619, end: 20150626
  267. SULFAMETHOXAZOLE [Concomitant]
     Active Substance: SULFAMETHOXAZOLE
     Dosage: 1920 MG, Q6H
     Route: 048
     Dates: start: 20150624, end: 20150702
  268. HUMAN IMMUNOGLOBULIN [Concomitant]
     Active Substance: HUMAN IMMUNOGLOBULIN G
     Dosage: 10000 MG, QD
     Route: 042
     Dates: start: 20150928, end: 20150930
  269. IMIPENEM [Concomitant]
     Active Substance: IMIPENEM
     Dosage: 1000 MG, Q8H
     Route: 042
     Dates: start: 20150625, end: 20150708
  270. INSULIN [Concomitant]
     Active Substance: INSULIN NOS
     Dosage: 8 IU, QD
     Route: 042
     Dates: start: 20150613, end: 20150613
  271. INSULIN [Concomitant]
     Active Substance: INSULIN NOS
     Dosage: 8 IU, QD
     Route: 058
     Dates: start: 20150906, end: 20150906
  272. IRON SUCROSE [Concomitant]
     Active Substance: IRON SUCROSE
     Indication: MINERAL SUPPLEMENTATION
     Dosage: 200 MG, QD
     Route: 042
     Dates: start: 20150613, end: 20150617
  273. ISOSORBIDE MONONITRATE. [Concomitant]
     Active Substance: ISOSORBIDE MONONITRATE
     Indication: CARDIOMYOPATHY
     Dosage: 50 MG, PRN
     Route: 042
     Dates: start: 20150626, end: 20150713
  274. LEUCOGEN [Concomitant]
     Active Substance: LEUCOGEN
     Indication: BLOOD DISORDER
     Dosage: 20 MG, TID
     Route: 048
     Dates: start: 20150717, end: 20150724
  275. METOPROLOL TARTRATE. [Concomitant]
     Active Substance: METOPROLOL TARTRATE
     Dosage: 25 MG, QD
     Route: 048
     Dates: start: 20150625, end: 20150625
  276. METOPROLOL TARTRATE. [Concomitant]
     Active Substance: METOPROLOL TARTRATE
     Dosage: 25 MG, BID
     Route: 048
     Dates: start: 20150613, end: 20150613
  277. METOPROLOL TARTRATE. [Concomitant]
     Active Substance: METOPROLOL TARTRATE
     Dosage: 12.5 MG, BID
     Route: 048
     Dates: start: 20150826, end: 20150827
  278. NIFEDIPINE. [Concomitant]
     Active Substance: NIFEDIPINE
     Dosage: 30 MG, QD
     Route: 048
     Dates: start: 20150709, end: 20150709
  279. PROMETHAZINE HYDROCHLORIDE. [Concomitant]
     Active Substance: PROMETHAZINE HYDROCHLORIDE
     Indication: HYPERSENSITIVITY
     Dosage: 25 MG, QD
     Route: 030
     Dates: start: 20150612, end: 20150612
  280. RECOMBINANT HUMAN ERYTHROPOIETIN [Concomitant]
     Active Substance: ERYTHROPOIETIN
     Dosage: 15000 IU, QD
     Route: 058
     Dates: start: 20151012, end: 20151023
  281. RECOMBINANT HUMAN ERYTHROPOIETIN [Concomitant]
     Active Substance: ERYTHROPOIETIN
     Dosage: 15000 IU, QD
     Route: 058
     Dates: start: 20150821, end: 20150909
  282. SODIUM BICARBONATE. [Concomitant]
     Active Substance: SODIUM BICARBONATE
     Dosage: 900 MG, TID
     Route: 048
     Dates: start: 20150626, end: 20150626
  283. SODIUM CHLORIDE. [Concomitant]
     Active Substance: SODIUM CHLORIDE
     Dosage: 1000 MG, TID
     Route: 048
     Dates: start: 20150722
  284. VANCOMYCIN HYDROCHLORIDE. [Concomitant]
     Active Substance: VANCOMYCIN HYDROCHLORIDE
     Indication: INFECTION
     Dosage: 500 MG, Q12H
     Route: 042
     Dates: start: 20150623, end: 20150624
  285. VANCOMYCIN HYDROCHLORIDE. [Concomitant]
     Active Substance: VANCOMYCIN HYDROCHLORIDE
     Dosage: 500 MG, Q16H
     Route: 042
     Dates: start: 20150629, end: 20150703
  286. BASILIXIMAB [Concomitant]
     Active Substance: BASILIXIMAB
     Indication: PRODUCT USED FOR UNKNOWN INDICATION
     Dosage: 20 MG, QD
     Route: 065
     Dates: start: 20150612, end: 20150612
  287. METHYLPREDNISOLONE. [Concomitant]
     Active Substance: METHYLPREDNISOLONE
     Dosage: 60 MG, QD
     Route: 065
     Dates: start: 20150728
  288. METHYLPREDNISOLONE. [Concomitant]
     Active Substance: METHYLPREDNISOLONE
     Dosage: 20 MG, QD
     Route: 065
  289. MYCOPHENOLATE SODIUM [Concomitant]
     Active Substance: MYCOPHENOLATE SODIUM
     Indication: TRANSPLANT REJECTION
     Dosage: 1440 MG, QD
     Route: 065
     Dates: start: 20150612, end: 20150617
  290. POLYENE PHOSPHATIDYLCHOLINE [Concomitant]
     Active Substance: PHOSPHOLIPID
     Dosage: 2 CO, TID
     Route: 048
     Dates: start: 20151021
  291. DEQUALINIUM CHLORIDE W/TYROTHRICIN [Concomitant]
     Indication: MOUTH ULCERATION
     Dosage: 1.25 MG, TID
     Route: 060
     Dates: start: 20151012, end: 20151102
  292. ENEMA (SODIUM PHOSPHATE, DIBASIC\SODIUM PHOSPHATE, MONOBASIC) [Concomitant]
     Active Substance: SODIUM PHOSPHATE, DIBASIC\SODIUM PHOSPHATE, MONOBASIC
     Dosage: 40 ML, QD (ANALLY)
     Route: 065
     Dates: start: 20150905, end: 20150905
  293. ENEMA (SODIUM PHOSPHATE, DIBASIC\SODIUM PHOSPHATE, MONOBASIC) [Concomitant]
     Active Substance: SODIUM PHOSPHATE, DIBASIC\SODIUM PHOSPHATE, MONOBASIC
     Dosage: 40 ML, QD (ANALLY)
     Route: 065
     Dates: start: 20150917, end: 20150917
  294. ORNITHINE ASPARTATE [Concomitant]
     Active Substance: ORNITHINE ASPARTATE
     Indication: PROPHYLAXIS
     Dosage: 10000 MG, QD
     Route: 042
     Dates: start: 20150928, end: 20150928
  295. ORNITHINE ASPARTATE [Concomitant]
     Active Substance: ORNITHINE ASPARTATE
     Dosage: 5000 MG, QD
     Route: 042
     Dates: start: 20150925, end: 20150928
  296. TRIMETAZIDINE DIHYDROCHLORIDE [Concomitant]
     Active Substance: TRIMETAZIDINE DIHYDROCHLORIDE
     Indication: ISCHAEMIC HEART DISEASE PROPHYLAXIS
     Dosage: 20 MG, BID
     Route: 048
     Dates: start: 20151016, end: 20151016
  297. MOSAPRIDE CITRATE [Concomitant]
     Active Substance: MOSAPRIDE CITRATE
     Dosage: 5 MG, TID
     Route: 048
     Dates: start: 20150723, end: 20150826
  298. ULINASTATIN [Concomitant]
     Active Substance: ULINASTATIN
     Indication: ENZYME INHIBITION
     Dosage: 3000 IU, BID
     Route: 042
     Dates: start: 20150626, end: 20150713
  299. MYFORTIC [Suspect]
     Active Substance: MYCOPHENOLATE SODIUM
     Dosage: 720 MG, QD
     Route: 048
     Dates: start: 20150622, end: 20150622
  300. TACROLIMUS. [Concomitant]
     Active Substance: TACROLIMUS
     Dosage: 5 MG, QD
     Route: 065
     Dates: start: 20150619, end: 20150622
  301. TACROLIMUS. [Concomitant]
     Active Substance: TACROLIMUS
     Dosage: 4 MG, QD
     Route: 065
     Dates: start: 20150622, end: 20150622
  302. TACROLIMUS. [Concomitant]
     Active Substance: TACROLIMUS
     Dosage: 60 MG, QD
     Route: 065
     Dates: start: 20150717, end: 20150724
  303. PREDNISONE. [Concomitant]
     Active Substance: PREDNISONE
     Dosage: 50 MG, QD
     Route: 065
     Dates: start: 20150909, end: 20150912
  304. SOLU?MEDROL [Concomitant]
     Active Substance: METHYLPREDNISOLONE SODIUM SUCCINATE
     Dosage: 120 MG, QD
     Route: 065
     Dates: start: 20150626, end: 20150630
  305. SOLU?MEDROL [Concomitant]
     Active Substance: METHYLPREDNISOLONE SODIUM SUCCINATE
     Dosage: 40 MG, QD
     Route: 065
     Dates: start: 20150818, end: 20150822
  306. CEFOPERAZONE SODIUM AND TAZOBACTAM SODIUM [Concomitant]
     Active Substance: CEFOPERAZONE\TAZOBACTAM SODIUM
     Dosage: 3000 MG, Q8H
     Route: 042
     Dates: start: 20150721, end: 20150723
  307. CEFOPERAZONE SODIUM AND TAZOBACTAM SODIUM [Concomitant]
     Active Substance: CEFOPERAZONE\TAZOBACTAM SODIUM
     Dosage: 2500 MG, BID
     Route: 042
     Dates: start: 20150622, end: 20150622
  308. AMPHOTERICINE B, LIPOSOME [Concomitant]
     Active Substance: AMPHOTERICIN B
     Dosage: 60 MG, QD
     Route: 042
     Dates: start: 20150705, end: 20150822
  309. POTASSIUM CHLORIDE. [Concomitant]
     Active Substance: POTASSIUM CHLORIDE
     Dosage: 1000 MG, QD
     Route: 042
     Dates: start: 20150703, end: 20150703
  310. POTASSIUM CHLORIDE. [Concomitant]
     Active Substance: POTASSIUM CHLORIDE
     Dosage: 10 ML, QD
     Route: 042
     Dates: start: 20150720, end: 20150720
  311. BUDESONIDE. [Concomitant]
     Active Substance: BUDESONIDE
     Indication: TRACHEAL DILATATION
     Dosage: 2 MG, BID (SPRAYING)
     Route: 065
     Dates: start: 20150612, end: 20150626
  312. CEFOPERAZONE [Concomitant]
     Active Substance: CEFOPERAZONE
     Dosage: 2500 MG, BID
     Route: 042
     Dates: start: 20150622, end: 20150622
  313. DIISOPROPYLAMINE DICHLOROACETATE [Concomitant]
     Indication: LIVER DISORDER
     Dosage: 80 MG, BID
     Route: 042
     Dates: start: 20150612, end: 20150619
  314. FENTANYL CITRATE. [Concomitant]
     Active Substance: FENTANYL CITRATE
     Indication: SEDATION
     Dosage: 200 MG, PRN
     Route: 042
     Dates: start: 20150628, end: 20150709
  315. HEPARIN SODIUM. [Concomitant]
     Active Substance: HEPARIN SODIUM
     Indication: COAGULOPATHY
     Dosage: 12500 IU, QD
     Route: 042
     Dates: start: 20150626, end: 20150713
  316. IMIPENEM [Concomitant]
     Active Substance: IMIPENEM
     Dosage: 1000 MG, Q8H
     Route: 042
     Dates: start: 20150806, end: 20150810
  317. INSULIN [Concomitant]
     Active Substance: INSULIN NOS
     Dosage: 6 IU, QD
     Route: 058
     Dates: start: 20150930, end: 20150930
  318. LANSOPRAZOLE. [Concomitant]
     Active Substance: LANSOPRAZOLE
     Indication: ANTACID THERAPY
     Dosage: 30 MG, BID
     Route: 042
     Dates: start: 20150612, end: 20150619
  319. MIDAZOLAM [Concomitant]
     Active Substance: MIDAZOLAM HYDROCHLORIDE
     Dosage: 2 MG, QD
     Route: 042
     Dates: start: 20150711, end: 20150711
  320. NICARDIPINE HYDROCHLORIDE. [Concomitant]
     Active Substance: NICARDIPINE HYDROCHLORIDE
     Indication: BLOOD PRESSURE INCREASED
     Dosage: 20 MG, PRN
     Route: 042
     Dates: start: 20150626, end: 20150707
  321. NIFEDIPINE. [Concomitant]
     Active Substance: NIFEDIPINE
     Dosage: 10 MG, QD
     Route: 060
     Dates: start: 20150614, end: 20150615
  322. NIFEDIPINE. [Concomitant]
     Active Substance: NIFEDIPINE
     Dosage: 30 MG, QD
     Route: 048
     Dates: start: 20150616, end: 20150629
  323. NIFEDIPINE. [Concomitant]
     Active Substance: NIFEDIPINE
     Dosage: 30 MG, QD
     Route: 048
     Dates: start: 20151102
  324. PETHIDINE HYDROCHLORIDE [Concomitant]
     Active Substance: MEPERIDINE HYDROCHLORIDE
     Indication: PAIN
     Dosage: 75 MG, QD
     Route: 030
     Dates: start: 20150703, end: 20150703
  325. PLASMA [Concomitant]
     Active Substance: HUMAN PLASMA
     Indication: PLASMA CELL DISORDER
     Dosage: 200 ML, BID
     Route: 042
     Dates: start: 20150612, end: 20150612
  326. POTASSIUM CHLORIDE. [Concomitant]
     Active Substance: POTASSIUM CHLORIDE
     Dosage: 20 ML, QD
     Route: 048
     Dates: start: 20150705, end: 20150705
  327. POTASSIUM CHLORIDE. [Concomitant]
     Active Substance: POTASSIUM CHLORIDE
     Dosage: 40 ML, QD
     Route: 048
     Dates: start: 20150706, end: 20150706
  328. POTASSIUM CHLORIDE. [Concomitant]
     Active Substance: POTASSIUM CHLORIDE
     Dosage: 10 ML, QD
     Route: 048
     Dates: start: 20150728, end: 20150728
  329. PROPOFOL. [Concomitant]
     Active Substance: PROPOFOL
     Indication: SEDATION
     Dosage: 50 ML, BID
     Route: 042
     Dates: start: 20150628, end: 20150628
  330. RECOMBINANT HUMAN ERYTHROPOIETIN [Concomitant]
     Active Substance: ERYTHROPOIETIN
     Indication: IMMUNISATION
     Dosage: 10000 U, BIW
     Route: 058
     Dates: start: 20150715, end: 20151023
  331. SODIUM BICARBONATE. [Concomitant]
     Active Substance: SODIUM BICARBONATE
     Indication: ANTACID THERAPY
     Dosage: 250 ML, QD
     Route: 042
     Dates: start: 20150628, end: 20150628
  332. TROPISETRON HYDROCHLORIDE [Concomitant]
     Active Substance: TROPISETRON HYDROCHLORIDE
     Indication: ANTIEMETIC SUPPORTIVE CARE
     Dosage: 2 MG, BID
     Route: 042
     Dates: start: 20150612, end: 20150615
  333. VORICONAZOLE. [Concomitant]
     Active Substance: VORICONAZOLE
     Dosage: 200 MG, QD
     Route: 048
     Dates: start: 20150925, end: 20150928
  334. METHYLPREDNISOLONE. [Concomitant]
     Active Substance: METHYLPREDNISOLONE
     Dosage: 90 MG, QD
     Route: 065
     Dates: start: 20150613, end: 20150613
  335. CEFOSELIS SULFATE [Concomitant]
     Active Substance: CEFOSELIS SULFATE
     Indication: ANTI-INFECTIVE THERAPY
     Dosage: 1000 MG, Q12H
     Route: 042
     Dates: start: 20150708, end: 20150713
  336. ENEMA (SODIUM PHOSPHATE, DIBASIC\SODIUM PHOSPHATE, MONOBASIC) [Concomitant]
     Active Substance: SODIUM PHOSPHATE, DIBASIC\SODIUM PHOSPHATE, MONOBASIC
     Dosage: 40 ML, QD (ANALLY)
     Route: 065
     Dates: start: 20151102, end: 20151103
  337. LYSINE ACETYLSALICYLATE [Concomitant]
     Active Substance: ASPIRIN DL-LYSINE
     Dosage: 900 MG, BID
     Route: 065
     Dates: start: 20150622, end: 20150622

REACTIONS (14)
  - Fungal infection [Recovering/Resolving]
  - Lung infection [Recovered/Resolved]
  - Leukopenia [Recovering/Resolving]
  - Palpitations [Recovering/Resolving]
  - Body temperature increased [Recovered/Resolved]
  - Pyrexia [Recovering/Resolving]
  - Liver injury [Recovering/Resolving]
  - Hypertension [Recovering/Resolving]
  - Hepatic function abnormal [Recovered/Resolved]
  - Hepatic function abnormal [Recovered/Resolved]
  - Urinary tract infection [Recovered/Resolved]
  - Fatigue [Recovering/Resolving]
  - Bone marrow failure [Recovered/Resolved]
  - Hepatic function abnormal [Recovered/Resolved]

NARRATIVE: CASE EVENT DATE: 20150616
